FAERS Safety Report 24792872 (Version 1)
Quarter: 2024Q4

REPORT INFORMATION
  Report Type: Report from Study
  Country: US (occurrence: US)
  Receive Date: 20241231
  Receipt Date: 20241231
  Transmission Date: 20250115
  Serious: No
  Sender: SUNOVION
  Company Number: US-SUMITOMO PHARMA SWITZERLAND GMBH-2024SPA006013

PATIENT

DRUGS (2)
  1. ORGOVYX [Suspect]
     Active Substance: RELUGOLIX
     Indication: Prostate cancer
     Dosage: 120 MG, QD
     Route: 048
     Dates: start: 20241119
  2. DOCETAXEL [Suspect]
     Active Substance: DOCETAXEL
     Route: 065

REACTIONS (7)
  - Hypersensitivity [Unknown]
  - Frequent bowel movements [Unknown]
  - Dyschezia [Unknown]
  - Pollakiuria [Unknown]
  - Alanine aminotransferase increased [Unknown]
  - Aspartate aminotransferase increased [Unknown]
  - Incorrect dose administered [Unknown]
